FAERS Safety Report 7996073-X (Version None)
Quarter: 2011Q4

REPORT INFORMATION
  Report Type: 
  Country: None (occurrence: None)
  Receive Date: 20111216
  Receipt Date: 20111212
  Transmission Date: 20120403
  Serious: Yes (Hospitalization)
  Sender: FDA-Public Use
  Company Number: 2011MA017518

PATIENT
  Age: 70 Year
  Sex: Female
  Weight: 88.4514 kg

DRUGS (8)
  1. LOSARTAN POTASSIUM [Suspect]
     Indication: HYPERTENSION
     Dosage: 100 MG;QD;PO
     Route: 048
  2. NIASPAN [Concomitant]
  3. METFORMIN [Concomitant]
  4. ISOSORBIDE MONONITRATE [Concomitant]
  5. DILTIAZEM HYDROCHLORIDE [Suspect]
     Indication: ATRIAL FIBRILLATION
     Dosage: IV
     Route: 042
     Dates: start: 20111101, end: 20111101
  6. CARVEDILOL [Concomitant]
  7. GUANFACINE HYDROCHLORIDE [Concomitant]
  8. AMLODIPINE [Concomitant]

REACTIONS (6)
  - INCORRECT DOSE ADMINISTERED [None]
  - HYPOTENSION [None]
  - HYPERTENSION [None]
  - DRUG HYPERSENSITIVITY [None]
  - ATRIAL FIBRILLATION [None]
  - TREATMENT NONCOMPLIANCE [None]
